FAERS Safety Report 25499935 (Version 1)
Quarter: 2025Q3

REPORT INFORMATION
  Report Type: Spontaneous
  Country: US (occurrence: US)
  Receive Date: 20250701
  Receipt Date: 20250701
  Transmission Date: 20251021
  Serious: No
  Sender: ORPHAZYME
  Company Number: US-ZEVRA DENMARK A/S-ORP-000546

PATIENT
  Age: 14 Year
  Sex: Female

DRUGS (1)
  1. OLPRUVA [Suspect]
     Active Substance: SODIUM PHENYLBUTYRATE
     Indication: Ornithine transcarbamoylase deficiency
     Dosage: 6 GRAM, TID
     Route: 048
     Dates: start: 20250106, end: 20250108

REACTIONS (1)
  - Product use complaint [Unknown]

NARRATIVE: CASE EVENT DATE: 20250106
